FAERS Safety Report 5758641-5 (Version None)
Quarter: 2008Q2

REPORT INFORMATION
  Report Type: 
  Country: None (occurrence: None)
  Receive Date: 20080603
  Receipt Date: 20080603
  Transmission Date: 20081010
  Serious: Yes (Disabling, Other)
  Sender: FDA-Public Use
  Company Number: None

PATIENT
  Age: 68 Year
  Sex: Female
  Weight: 69.8539 kg

DRUGS (2)
  1. DIGOXIN [Suspect]
     Indication: ATRIAL FIBRILLATION
     Dosage: .25MGS. ONCE PER DAY PO
     Route: 048
     Dates: start: 20011127, end: 20080502
  2. DIGOXIN [Suspect]
     Indication: HEART RATE IRREGULAR
     Dosage: .25MGS. ONCE PER DAY PO
     Route: 048
     Dates: start: 20011127, end: 20080502

REACTIONS (4)
  - AORTIC VALVE REPLACEMENT [None]
  - BRADYCARDIA [None]
  - MITRAL VALVE REPLACEMENT [None]
  - TACHYCARDIA [None]
